FAERS Safety Report 4279597-0 (Version None)
Quarter: 2004Q1

REPORT INFORMATION
  Report Type: 
  Country: None (occurrence: None)
  Receive Date: 20040123
  Receipt Date: 20031219
  Transmission Date: 20041129
  Serious: Yes (Hospitalization)
  Sender: FDA-Public Use
  Company Number: RB-391-2003

PATIENT
  Age: 22 Year
  Sex: Male

DRUGS (1)
  1. BUPRENORPHINE HYDROCHLORIDE [Suspect]
     Indication: DRUG DEPENDENCE

REACTIONS (6)
  - ENDOPHTHALMITIS [None]
  - NECROSIS [None]
  - SEPSIS [None]
  - SEPSIS SYNDROME [None]
  - SKIN NODULE [None]
  - VITRITIS [None]
